FAERS Safety Report 9971182 (Version 1)
Quarter: 2014Q1

REPORT INFORMATION
  Report Type: Report from Study
  Country: US (occurrence: US)
  Receive Date: 20140306
  Receipt Date: 20140306
  Transmission Date: 20141002
  Serious: No
  Sender: FDA-Public Use
  Company Number: US-ABBVIE-13P-163-1151940-00

PATIENT
  Age: 42 Year
  Sex: Female

DRUGS (7)
  1. HUMIRA [Suspect]
     Indication: COLITIS ULCERATIVE
     Dates: start: 20130828, end: 20130828
  2. HUMIRA [Suspect]
     Dates: start: 20130912, end: 20130912
  3. HUMIRA [Suspect]
  4. ELMIRON [Concomitant]
     Indication: CYSTITIS INTERSTITIAL
  5. LOMOTIL [Concomitant]
     Indication: DIARRHOEA
     Dosage: DOSE NOT AVAILABLE
  6. VIVELLE [Concomitant]
     Indication: OESTROGEN REPLACEMENT THERAPY
  7. VIVELLE [Concomitant]
     Indication: HYSTERECTOMY

REACTIONS (1)
  - Inappropriate schedule of drug administration [Recovered/Resolved]
